FAERS Safety Report 6647429-9 (Version None)
Quarter: 2010Q1

REPORT INFORMATION
  Report Type: 
  Country: None (occurrence: None)
  Receive Date: 20100323
  Receipt Date: 20100318
  Transmission Date: 20100710
  Serious: Yes (Death)
  Sender: FDA-Public Use
  Company Number: US-CELGENEUS-163-21880-10030478

PATIENT
  Sex: Male
  Weight: 101.86 kg

DRUGS (1)
  1. REVLIMID [Suspect]
     Indication: MYELODYSPLASTIC SYNDROME
     Route: 048
     Dates: start: 20100113, end: 20100228

REACTIONS (2)
  - CARDIAC ARREST [None]
  - NEOPLASM PROGRESSION [None]
